FAERS Safety Report 6405838-7 (Version None)
Quarter: 2009Q4

REPORT INFORMATION
  Report Type: 
  Country: None (occurrence: None)
  Receive Date: 20091019
  Receipt Date: 20091013
  Transmission Date: 20100525
  Serious: Yes (Hospitalization, Disabling, Other)
  Sender: FDA-Public Use
  Company Number: US-MERCK-0707USA05056

PATIENT
  Age: 70 Year
  Sex: Female

DRUGS (5)
  1. FOSAMAX [Suspect]
     Indication: OSTEOPOROSIS
     Route: 048
     Dates: start: 20000101, end: 20010101
  2. FOSAMAX [Suspect]
     Route: 048
     Dates: start: 20010614, end: 20030923
  3. FOSAMAX [Suspect]
     Route: 048
     Dates: start: 20031001
  4. FOSAMAX [Suspect]
     Route: 048
     Dates: start: 20040121, end: 20060226
  5. FOSAMAX PLUS D [Suspect]
     Indication: OSTEOPOROSIS
     Route: 048

REACTIONS (27)
  - ABDOMINAL PAIN [None]
  - ABSCESS [None]
  - ADVERSE EVENT [None]
  - BUNDLE BRANCH BLOCK LEFT [None]
  - BURSITIS [None]
  - CORONARY ARTERY DISEASE [None]
  - DEMENTIA ALZHEIMER'S TYPE [None]
  - DENTAL CARIES [None]
  - DIVERTICULUM [None]
  - DRUG ADMINISTRATION ERROR [None]
  - EDENTULOUS [None]
  - FATIGUE [None]
  - GASTROOESOPHAGEAL REFLUX DISEASE [None]
  - HAEMORRHOIDS [None]
  - HYPERCHOLESTEROLAEMIA [None]
  - HYPERLIPIDAEMIA [None]
  - HYPERTENSION [None]
  - HYPOTHYROIDISM [None]
  - IRON DEFICIENCY ANAEMIA [None]
  - JAW DISORDER [None]
  - LIPIDS ABNORMAL [None]
  - MYOCARDIAL ISCHAEMIA [None]
  - OSTEOMYELITIS [None]
  - OSTEONECROSIS [None]
  - PSORIASIS [None]
  - TOOTH ABSCESS [None]
  - UPPER RESPIRATORY TRACT INFECTION [None]
